FAERS Safety Report 4369455-5 (Version None)
Quarter: 2004Q2

REPORT INFORMATION
  Report Type: 
  Country: None (occurrence: None)
  Receive Date: 20040527
  Receipt Date: 20040512
  Transmission Date: 20050107
  Serious: Yes (Hospitalization)
  Sender: FDA-Public Use
  Company Number: USA030741976

PATIENT
  Age: 32 Year
  Sex: Female
  Weight: 51 kg

DRUGS (4)
  1. ZYPREXA [Suspect]
     Indication: BIPOLAR I DISORDER
     Dosage: 10 MG/2 DAY
     Dates: start: 19980101
  2. ZYPREXA [Suspect]
     Indication: BIPOLAR I DISORDER
     Dosage: 10 MG/2 DAY
  3. TRAZODONE HCL [Concomitant]
  4. TOPAMAX [Concomitant]

REACTIONS (5)
  - MANIA [None]
  - SCREAMING [None]
  - TREATMENT NONCOMPLIANCE [None]
  - TREMOR [None]
  - WEIGHT INCREASED [None]
